FAERS Safety Report 12198502 (Version 1)
Quarter: 2016Q1

REPORT INFORMATION
  Report Type: Spontaneous
  Country: US (occurrence: US)
  Receive Date: 20160322
  Receipt Date: 20160322
  Transmission Date: 20160526
  Serious: Yes (Other)
  Sender: FDA-Public Use
  Company Number: US-JNJFOC-20160212702

PATIENT
  Age: 52 Year
  Sex: Male
  Weight: 120.2 kg

DRUGS (2)
  1. GABAPENTIN. [Concomitant]
     Active Substance: GABAPENTIN
     Route: 065
  2. INVOKANA [Suspect]
     Active Substance: CANAGLIFLOZIN
     Indication: TYPE 2 DIABETES MELLITUS
     Route: 048
     Dates: start: 201601

REACTIONS (3)
  - Urinary tract infection [Unknown]
  - Abdominal pain lower [Unknown]
  - Dyspepsia [Unknown]

NARRATIVE: CASE EVENT DATE: 201601
